FAERS Safety Report 7927982-5 (Version None)
Quarter: 2011Q4

REPORT INFORMATION
  Report Type: 
  Country: None (occurrence: None)
  Receive Date: 20111117
  Receipt Date: 20111117
  Transmission Date: 20120403
  Serious: Yes (Other)
  Sender: FDA-Public Use
  Company Number: None

PATIENT
  Age: 59 Year
  Sex: Female
  Weight: 105.5974 kg

DRUGS (2)
  1. MORPHINE [Suspect]
     Indication: FIBROMYALGIA
     Dosage: 60MG 1 Q 4 HOURS PO
     Route: 048
     Dates: start: 20111025, end: 20111115
  2. MORPHINE [Suspect]
     Indication: FIBROMYALGIA
     Dosage: 200MG 1 Q 4 HOURS PO
     Route: 048
     Dates: start: 20111025, end: 20111115

REACTIONS (2)
  - ACTIVITIES OF DAILY LIVING IMPAIRED [None]
  - DRUG INEFFECTIVE [None]
